FAERS Safety Report 9701256 (Version 2)
Quarter: 2013Q4

REPORT INFORMATION
  Report Type: Spontaneous
  Country: US (occurrence: US)
  Receive Date: 20131121
  Receipt Date: 20131121
  Transmission Date: 20140711
  Serious: Yes (Hospitalization)
  Sender: FDA-Public Use
  Company Number: US-GILEAD-2008-0016075

PATIENT
  Sex: Female

DRUGS (16)
  1. LETAIRIS [Suspect]
     Indication: PULMONARY ARTERIAL HYPERTENSION
     Route: 048
     Dates: start: 20080117, end: 20080312
  2. TORSEMIDE [Concomitant]
     Dosage: UD
     Route: 048
     Dates: start: 20080101
  3. AVALIDE [Concomitant]
     Dosage: UD
     Route: 048
     Dates: start: 20080101
  4. LISINOPRIL [Concomitant]
     Dosage: UD
     Route: 048
     Dates: start: 20080101
  5. TOPROL XL [Concomitant]
     Dosage: UD
     Route: 048
     Dates: start: 20080101
  6. PROCARDIA [Concomitant]
     Dosage: UD
     Route: 048
     Dates: start: 20080101
  7. DOXAZOSIN [Concomitant]
     Dosage: UD
     Route: 048
     Dates: start: 20080101
  8. SINGULAIR [Concomitant]
     Dosage: UD
     Dates: start: 20080101
  9. BENADRYL [Concomitant]
     Dosage: UD
     Dates: start: 20080101
  10. SPIRIVA [Concomitant]
     Dosage: UD
     Route: 055
     Dates: start: 20080101
  11. RHINOCORT AQUA [Concomitant]
     Dosage: UD
     Route: 048
     Dates: start: 20080101
  12. HUMULIN [Concomitant]
     Dosage: UD
     Route: 058
     Dates: start: 20080101
  13. PRAVASTATIN [Concomitant]
     Dosage: UD
     Route: 048
     Dates: start: 20080101
  14. ZETIA [Concomitant]
     Dosage: UD
     Route: 048
     Dates: start: 20080101
  15. ASPIRIN [Concomitant]
     Dosage: UD
     Route: 048
     Dates: start: 20080101
  16. POTASSIUM [Concomitant]
     Dosage: UD
     Route: 048
     Dates: start: 20080101

REACTIONS (1)
  - Haemoglobin decreased [None]
